FAERS Safety Report 4581971-X (Version None)
Quarter: 2005Q1

REPORT INFORMATION
  Report Type: 
  Country: None (occurrence: None)
  Receive Date: 20050119
  Receipt Date: 20040428
  Transmission Date: 20050727
  Serious: Yes (Other)
  Sender: FDA-Public Use
  Company Number: US-JNJFOC-20040203329

PATIENT
  Age: 65 Year
  Sex: Female
  Weight: 93 kg

DRUGS (8)
  1. DOXIL [Suspect]
     Indication: OVARIAN CANCER
     Dosage: 40 MG/M2, 1 IN 4 WEEK, INTRAVENOUS
     Route: 042
     Dates: start: 20031124
  2. VANCOMYCIN [Suspect]
     Indication: CATHETER RELATED INFECTION
     Dosage: 1 G, 2 IN 1 DAY, INTRAVENOUS
     Route: 042
     Dates: start: 20040102
  3. TOPOTECAN (TOPOTECAN) [Concomitant]
  4. DICLOXACILLIN [Concomitant]
  5. COUMADIN [Concomitant]
  6. MAGNESIUM (MAGNESIUM) [Concomitant]
  7. ATENOLOL [Concomitant]
  8. TRIAMTERENE (TRIAMTERENE) [Concomitant]

REACTIONS (3)
  - CATHETER RELATED INFECTION [None]
  - RASH [None]
  - RASH PRURITIC [None]
